FAERS Safety Report 9675674 (Version 3)
Quarter: 2013Q4

REPORT INFORMATION
  Report Type: Spontaneous
  Country: DE (occurrence: DE)
  Receive Date: 20131107
  Receipt Date: 20131219
  Transmission Date: 20140711
  Serious: Yes (Death, Other)
  Sender: FDA-Public Use
  Company Number: DE-BAXTER-2013BAX041441

PATIENT
  Age: 62 Year
  Sex: Male
  Weight: 80 kg

DRUGS (26)
  1. EXTRANEAL [Suspect]
     Indication: PERITONEAL DIALYSIS
     Dosage: 1X2L
     Route: 033
     Dates: start: 20130815
  2. EXTRANEAL [Suspect]
     Indication: INTERCAPILLARY GLOMERULOSCLEROSIS
  3. EXTRANEAL [Suspect]
     Indication: PERITONEAL DIALYSIS
  4. PHYSIONEAL 35 GLUCOSE 1,36 % W/V 13,6 MG/ML CLEAR-FLEX PERITONEALDIALY [Suspect]
     Indication: INTERCAPILLARY GLOMERULOSCLEROSIS
     Route: 033
     Dates: start: 20130815
  5. PHYSIONEAL 35 GLUCOSE 1,36 % W/V 13,6 MG/ML CLEAR-FLEX PERITONEALDIALY [Suspect]
     Indication: PERITONEAL DIALYSIS
  6. PHYSIONEAL 35 GLUCOSE 1,36 % W/V 13,6 MG/ML CLEAR-FLEX PERITONEALDIALY [Suspect]
     Indication: PERITONEAL DIALYSIS
  7. PHYSIONEAL 35 GLUCOSE 2,27 % W/V 22,7 MG/ML CLEAR-FLEX PERITONEALDIALY [Suspect]
     Indication: PERITONEAL DIALYSIS
     Route: 033
     Dates: start: 20130815
  8. PHYSIONEAL 35 GLUCOSE 2,27 % W/V 22,7 MG/ML CLEAR-FLEX PERITONEALDIALY [Suspect]
     Indication: INTERCAPILLARY GLOMERULOSCLEROSIS
  9. PHYSIONEAL 35 GLUCOSE 2,27 % W/V 22,7 MG/ML CLEAR-FLEX PERITONEALDIALY [Suspect]
     Indication: PERITONEAL DIALYSIS
  10. BISOPROLOL [Concomitant]
     Indication: CORONARY ARTERY DISEASE
     Route: 048
  11. AMLODIPIN [Concomitant]
     Indication: HYPERTENSION
     Route: 048
     Dates: start: 201208
  12. RAMIPRIL [Concomitant]
     Indication: CORONARY ARTERY DISEASE
     Route: 048
     Dates: start: 201208
  13. RAMIPRIL [Concomitant]
     Indication: HYPERTENSION
  14. SIMVAHEXAL [Concomitant]
     Indication: ARTERIAL OCCLUSIVE DISEASE
     Route: 048
  15. ASS 100 [Concomitant]
     Indication: PRODUCT USED FOR UNKNOWN INDICATION
  16. TORASEMID [Concomitant]
     Indication: PRODUCT USED FOR UNKNOWN INDICATION
  17. ALLOPURINOL [Concomitant]
     Indication: PRODUCT USED FOR UNKNOWN INDICATION
  18. LANTUS [Concomitant]
     Indication: PRODUCT USED FOR UNKNOWN INDICATION
  19. XIPAMID [Concomitant]
     Indication: PRODUCT USED FOR UNKNOWN INDICATION
  20. APIDRA [Concomitant]
     Indication: PRODUCT USED FOR UNKNOWN INDICATION
  21. FOSRENOL [Concomitant]
     Indication: PRODUCT USED FOR UNKNOWN INDICATION
  22. MARCUMAR [Concomitant]
     Indication: PRODUCT USED FOR UNKNOWN INDICATION
  23. DEKRISTOL [Concomitant]
     Indication: PRODUCT USED FOR UNKNOWN INDICATION
  24. CALCIUMACETAT [Concomitant]
     Indication: PRODUCT USED FOR UNKNOWN INDICATION
  25. VEROSPIRON [Concomitant]
     Indication: PRODUCT USED FOR UNKNOWN INDICATION
  26. EPOETIN BETA [Concomitant]
     Indication: PRODUCT USED FOR UNKNOWN INDICATION

REACTIONS (4)
  - Myocardial infarction [Fatal]
  - Cerebral ischaemia [Fatal]
  - Sepsis [Fatal]
  - Peritonitis bacterial [Unknown]
